FAERS Safety Report 18742085 (Version 3)
Quarter: 2021Q1

REPORT INFORMATION
  Report Type: Spontaneous
  Country: CZ (occurrence: CZ)
  Receive Date: 20210114
  Receipt Date: 20210308
  Transmission Date: 20210419
  Serious: Yes (Other)
  Sender: FDA-Public Use
  Company Number: CZ-ROCHE-2745712

PATIENT
  Age: 42 Year
  Sex: Female

DRUGS (7)
  1. OCREVUS [Suspect]
     Active Substance: OCRELIZUMAB
     Dosage: SINCE  5.5 MONTHS
     Route: 042
     Dates: start: 20200210
  2. OCREVUS [Suspect]
     Active Substance: OCRELIZUMAB
     Indication: RELAPSING-REMITTING MULTIPLE SCLEROSIS
     Dosage: SINCE  5.5 MONTHS
     Route: 042
     Dates: start: 20190712
  3. OCREVUS [Suspect]
     Active Substance: OCRELIZUMAB
     Dosage: SINCE  5.5 MONTHS
     Route: 042
     Dates: start: 20190801
  4. LETROX [Concomitant]
     Active Substance: LEVOTHYROXINE SODIUM
     Dosage: 1*1
  5. PRESTARIUM NEO [Concomitant]
     Active Substance: PERINDOPRIL ARGININE
     Dosage: 1*1
  6. OCREVUS [Suspect]
     Active Substance: OCRELIZUMAB
     Dosage: SINCE  5.5 MONTHS
     Route: 042
     Dates: start: 20200814
  7. BACLOFEN. [Concomitant]
     Active Substance: BACLOFEN
     Dosage: 4*1

REACTIONS (1)
  - Polyarteritis nodosa [Not Recovered/Not Resolved]

NARRATIVE: CASE EVENT DATE: 20200727
